FAERS Safety Report 15682463 (Version 2)
Quarter: 2019Q2

REPORT INFORMATION
  Report Type: Spontaneous
  Country: US (occurrence: US)
  Receive Date: 20181203
  Receipt Date: 20190531
  Transmission Date: 20190711
  Serious: No
  Sender: FDA-Public Use
  Company Number: US-PFIZER INC-2018491135

PATIENT
  Age: 61 Year
  Sex: Female

DRUGS (19)
  1. METOPROLOL TARTRATE. [Concomitant]
     Active Substance: METOPROLOL TARTRATE
     Dosage: 50 MG, 2X/DAY(50 MG 1 TABLET WITH FOOD ORAL1Y TWICE A DAY)
     Route: 048
  2. ATORVASTATIN CALCIUM. [Concomitant]
     Active Substance: ATORVASTATIN CALCIUM
     Dosage: 40 MG, 1X/DAY
     Route: 048
  3. DIPYRIDAMOLE. [Concomitant]
     Active Substance: DIPYRIDAMOLE
     Dosage: 50 MG, 2X/DAY
     Route: 048
  4. CLONIDINE HCL [Concomitant]
     Active Substance: CLONIDINE HYDROCHLORIDE
     Indication: BLOOD PRESSURE SYSTOLIC INCREASED
     Dosage: 0.1 MG, 3X/DAY (1 TAB PO (ORAL) Q (EVERY) 8 HR IF SYSTOLIC BP OVER 150)
     Route: 048
  5. ALPRAZOLAM. [Concomitant]
     Active Substance: ALPRAZOLAM
     Dosage: 1 MG, 3X/DAY
     Route: 048
  6. OXYCODONE HYDROCHLORIDE. [Concomitant]
     Active Substance: OXYCODONE HYDROCHLORIDE
     Dosage: 30 MG, AS NEEDED(1 TABLET ORALLY THREE TIMES A DAY, PRN (AS NEEDED))
     Route: 048
  7. XELJANZ [Suspect]
     Active Substance: TOFACITINIB CITRATE
     Dosage: 5 MG, UNK
  8. PROAIR HFA [Concomitant]
     Active Substance: ALBUTEROL SULFATE
     Dosage: 2 DF, AS NEEDED (108 (90 BASE) MCG/ACT 2 PUFFS INHALATION EVERY 4-6 HOURS, PRN (AS NEEDED))
  9. LEVEMIR [Concomitant]
     Active Substance: INSULIN DETEMIR
     Dosage: 46 IU, UNK
  10. LEVEMIR [Concomitant]
     Active Substance: INSULIN DETEMIR
     Dosage: 44 IU, 1X/DAY
     Route: 058
  11. METOLAZONE. [Concomitant]
     Active Substance: METOLAZONE
     Dosage: 2.5 MG, WEEKLY
     Route: 048
  12. POTASSIUM CHLORIDE. [Concomitant]
     Active Substance: POTASSIUM CHLORIDE
     Dosage: 20 MEQ, 1X/DAY(1 TABLET WITH FOOD ORALLY ONCE A DAY)
     Route: 048
  13. PANTOPRAZOLE SODIUM. [Concomitant]
     Active Substance: PANTOPRAZOLE SODIUM
     Dosage: 40 MG, 1X/DAY
     Route: 048
  14. FAMOTIDINE. [Concomitant]
     Active Substance: FAMOTIDINE
     Dosage: 40 MG, 1X/DAY
     Route: 048
  15. ALDACTONE [Concomitant]
     Active Substance: SPIRONOLACTONE
     Dosage: 25 MG, 1X/DAY (1 TABLET WITH FOOD ORALLY ONCE A DAY)
     Route: 048
  16. GLIPIZIDE. [Concomitant]
     Active Substance: GLIPIZIDE
     Dosage: 10 MG, 2X/DAY
     Route: 048
  17. NITROSTAT [Concomitant]
     Active Substance: NITROGLYCERIN
     Dosage: UNK, AS NEEDED(0-4 MG AS DIRECTED SUBLINGUAL PRN (AS NEEDED))
     Route: 060
  18. FUROSEMIDE. [Concomitant]
     Active Substance: FUROSEMIDE
     Dosage: 40 MG, 2X/DAY
     Route: 048
  19. MS CONTIN [Concomitant]
     Active Substance: MORPHINE SULFATE
     Dosage: 30 MG, 2X/DAY(1 TABLET ORALLY EVERY 12 HRS)
     Route: 048

REACTIONS (1)
  - Renal disorder [Not Recovered/Not Resolved]

NARRATIVE: CASE EVENT DATE: 2018
